FAERS Safety Report 7068201-4 (Version None)
Quarter: 2010Q4

REPORT INFORMATION
  Report Type: 
  Country: None (occurrence: None)
  Receive Date: 20101028
  Receipt Date: 20091021
  Transmission Date: 20110411
  Serious: No
  Sender: FDA-Public Use
  Company Number: US-MYLANLABS-2009S1018429

PATIENT
  Sex: Female

DRUGS (2)
  1. DIAZEPAM [Suspect]
     Indication: MUSCLE SPASMS
     Route: 048
  2. BENADRYL [Concomitant]
     Route: 048

REACTIONS (2)
  - HEADACHE [None]
  - HYPERSENSITIVITY [None]
